FAERS Safety Report 19304111 (Version 2)
Quarter: 2021Q2

REPORT INFORMATION
  Report Type: Spontaneous
  Country: PL (occurrence: PL)
  Receive Date: 20210525
  Receipt Date: 20210622
  Transmission Date: 20210717
  Serious: Yes (Hospitalization, Other)
  Sender: FDA-Public Use
  Company Number: NVSC2021PL107808

PATIENT
  Age: 65 Year
  Sex: Male

DRUGS (31)
  1. SACUBITRIL,VALSARTAN [Suspect]
     Active Substance: SACUBITRIL\VALSARTAN
     Indication: PRODUCT USED FOR UNKNOWN INDICATION
     Dosage: UNK UNK, BID (24/26 MG)
     Route: 065
     Dates: start: 20191017
  2. SACUBITRIL,VALSARTAN [Suspect]
     Active Substance: SACUBITRIL\VALSARTAN
     Dosage: UNK, BID (24/26 MG)
     Route: 065
     Dates: start: 202103
  3. ASA [Suspect]
     Active Substance: ASPIRIN
     Indication: PRODUCT USED FOR UNKNOWN INDICATION
     Dosage: 75 MG
     Route: 065
     Dates: start: 20190811
  4. APIXABAN [Suspect]
     Active Substance: APIXABAN
     Dosage: 2.5 MG, BID
     Route: 065
     Dates: start: 20191115
  5. APIXABAN [Suspect]
     Active Substance: APIXABAN
     Dosage: 2.5 MG, BID
     Route: 065
     Dates: start: 202103
  6. ASA [Suspect]
     Active Substance: ASPIRIN
     Dosage: 75 MG
     Route: 065
     Dates: start: 20191115
  7. CARVEDILOL. [Suspect]
     Active Substance: CARVEDILOL
     Dosage: 25 MG, QD
     Route: 065
     Dates: start: 202103
  8. FUROSEMIDE. [Suspect]
     Active Substance: FUROSEMIDE
     Indication: PRODUCT USED FOR UNKNOWN INDICATION
     Dosage: 40 MG, QD
     Route: 065
     Dates: start: 20191017
  9. CLOPIDOGREL [Suspect]
     Active Substance: CLOPIDOGREL BISULFATE
     Indication: PRODUCT USED FOR UNKNOWN INDICATION
     Dosage: 75 MG
     Route: 065
     Dates: start: 20190811
  10. METFORMIN [Suspect]
     Active Substance: METFORMIN HYDROCHLORIDE
     Indication: PRODUCT USED FOR UNKNOWN INDICATION
     Dosage: 500 MG, TID (3X/DAY)
     Route: 065
     Dates: start: 20190811
  11. METFORMIN [Suspect]
     Active Substance: METFORMIN HYDROCHLORIDE
     Dosage: 500 MG, TID (3X/DAY)
     Route: 065
     Dates: start: 202103
  12. EPLERENONE. [Suspect]
     Active Substance: EPLERENONE
     Dosage: 50 MG
     Route: 065
  13. CARVEDILOL. [Suspect]
     Active Substance: CARVEDILOL
     Indication: PRODUCT USED FOR UNKNOWN INDICATION
     Dosage: 25 MG, QD (12.5 MG, BID)
     Route: 065
  14. CARVEDILOL. [Suspect]
     Active Substance: CARVEDILOL
     Dosage: 12.5 MG, TID (3X/DAY)
     Route: 065
     Dates: start: 202103
  15. EPLERENONE. [Suspect]
     Active Substance: EPLERENONE
     Dosage: 50 MG
     Route: 065
     Dates: start: 202103
  16. APIXABAN [Suspect]
     Active Substance: APIXABAN
     Indication: CEREBROVASCULAR ACCIDENT PROPHYLAXIS
     Dosage: 2.5 MG, BID
     Route: 065
     Dates: start: 202010
  17. TORASEMIDE [Suspect]
     Active Substance: TORSEMIDE
     Dosage: 10 MG
     Route: 065
     Dates: start: 202103
  18. TORASEMIDE [Suspect]
     Active Substance: TORSEMIDE
     Dosage: 10 MG
     Route: 065
  19. TORASEMIDE [Suspect]
     Active Substance: TORSEMIDE
     Indication: PRODUCT USED FOR UNKNOWN INDICATION
     Dosage: 5 MG
     Route: 065
     Dates: start: 20190811
  20. EPLERENONE. [Suspect]
     Active Substance: EPLERENONE
     Indication: PRODUCT USED FOR UNKNOWN INDICATION
     Dosage: 25 MG
     Route: 065
     Dates: start: 20190811
  21. FUROSEMIDE. [Suspect]
     Active Substance: FUROSEMIDE
     Dosage: 40 MG, QD
     Route: 065
     Dates: start: 202010
  22. RAMIPRIL. [Suspect]
     Active Substance: RAMIPRIL
     Indication: PRODUCT USED FOR UNKNOWN INDICATION
     Dosage: 2.5 MG
     Route: 065
     Dates: start: 20190811
  23. ASA [Suspect]
     Active Substance: ASPIRIN
     Dosage: 75 MG
     Route: 065
     Dates: start: 20191015
  24. CARVEDILOL. [Suspect]
     Active Substance: CARVEDILOL
     Dosage: UNK MG, BID (12.5 MG?0?6.25)
     Route: 065
  25. FUROSEMIDE. [Suspect]
     Active Substance: FUROSEMIDE
     Dosage: 40 MG, BID
     Route: 065
  26. DAPAGLIFLOZIN. [Concomitant]
     Active Substance: DAPAGLIFLOZIN
     Indication: PRODUCT USED FOR UNKNOWN INDICATION
     Dosage: 10 MG
     Route: 065
     Dates: start: 202103
  27. IPP [PANTOPRAZOLE SODIUM] [Suspect]
     Active Substance: PANTOPRAZOLE SODIUM
     Indication: PRODUCT USED FOR UNKNOWN INDICATION
     Dosage: UNK
     Route: 065
     Dates: start: 20190811
  28. BISOPROLOL [Suspect]
     Active Substance: BISOPROLOL
     Indication: PRODUCT USED FOR UNKNOWN INDICATION
     Dosage: 2.5 MG
     Route: 065
     Dates: start: 20190811
  29. ATORVASTATIN [Suspect]
     Active Substance: ATORVASTATIN
     Indication: PRODUCT USED FOR UNKNOWN INDICATION
     Dosage: 40 MG
     Route: 065
     Dates: start: 20190811
  30. ATORVASTATIN [Suspect]
     Active Substance: ATORVASTATIN
     Dosage: 40 MG
     Route: 065
     Dates: start: 202103
  31. ATORVASTATIN [Suspect]
     Active Substance: ATORVASTATIN
     Dosage: 20 MG
     Route: 065

REACTIONS (13)
  - Mitral valve thickening [Unknown]
  - Ejection fraction decreased [Unknown]
  - Pulmonary oedema [Unknown]
  - Mitral valve calcification [Unknown]
  - Concomitant disease aggravated [Unknown]
  - Mitral valve incompetence [Unknown]
  - Haemoglobin decreased [Unknown]
  - Glycosylated haemoglobin increased [Unknown]
  - Blood pressure decreased [Unknown]
  - Glomerular filtration rate decreased [Unknown]
  - N-terminal prohormone brain natriuretic peptide increased [Unknown]
  - Heart rate decreased [Unknown]
  - Platelet count decreased [Unknown]

NARRATIVE: CASE EVENT DATE: 201911
